FAERS Safety Report 6635382-3 (Version None)
Quarter: 2010Q1

REPORT INFORMATION
  Report Type: 
  Country: None (occurrence: None)
  Receive Date: 20100311
  Receipt Date: 20100311
  Transmission Date: 20100710
  Serious: Yes (Hospitalization)
  Sender: FDA-Public Use
  Company Number: None

PATIENT
  Age: 40 Year
  Sex: Female

DRUGS (7)
  1. ENOXAPARIN SODIUM [Suspect]
     Indication: POST PROCEDURAL PULMONARY EMBOLISM
     Dosage: 90MG TWICE DAILY SQ
     Route: 058
     Dates: start: 20090105, end: 20090121
  2. WARFARIN SODIUM [Concomitant]
  3. ASCORBIC ACID [Concomitant]
  4. FERROUS GLUCONATE [Concomitant]
  5. HYDROCODONE BITARTRATE AND ACETAMINOPHEN [Concomitant]
  6. ESOMEPRAZOLE [Concomitant]
  7. ZOLPIDIEM [Concomitant]

REACTIONS (4)
  - ANAEMIA [None]
  - MUSCLE HAEMORRHAGE [None]
  - PERITONEAL HAEMORRHAGE [None]
  - TACHYCARDIA [None]
